FAERS Safety Report 5300295-6 (Version None)
Quarter: 2007Q2

REPORT INFORMATION
  Report Type: 
  Country: None (occurrence: None)
  Receive Date: 20070418
  Receipt Date: 20070409
  Transmission Date: 20071010
  Serious: Yes (Other)
  Sender: FDA-Public Use
  Company Number: PHBS2006CN01405

PATIENT
  Age: 39 Year
  Sex: Male
  Weight: 92 kg

DRUGS (1)
  1. VOLTAREN [Suspect]
     Indication: ARTHRALGIA
     Dosage: 25 MG/DAY
     Route: 048
     Dates: start: 20051224, end: 20051226

REACTIONS (4)
  - BLOOD URINE PRESENT [None]
  - HENOCH-SCHONLEIN PURPURA [None]
  - PETECHIAE [None]
  - PROTEIN URINE PRESENT [None]
